FAERS Safety Report 25847144 (Version 1)
Quarter: 2025Q3

REPORT INFORMATION
  Report Type: Other
  Country: GB (occurrence: GB)
  Receive Date: 20250925
  Receipt Date: 20250925
  Transmission Date: 20251021
  Serious: Yes (Other)
  Sender: GLENMARK
  Company Number: None

PATIENT
  Age: 67 Year
  Sex: Female
  Weight: 75 kg

DRUGS (9)
  1. EZETIMIBE [Suspect]
     Active Substance: EZETIMIBE
     Indication: Ill-defined disorder
     Dosage: 10 MILLIGRAM, OD (TAKE ONE TABLET ONCE A DAY  )
     Route: 065
     Dates: start: 20250711
  2. HYDROCORTISONE [Concomitant]
     Active Substance: HYDROCORTISONE
     Indication: Ill-defined disorder
     Dosage: UNK UNK, BID (APPLY TWICE DAILY)
     Route: 065
     Dates: start: 20250619, end: 20250626
  3. Hylo night [Concomitant]
     Indication: Ill-defined disorder
     Dosage: UNK, QD (APPLY TO THE AFFECTED EYES AT NIGHT)
     Route: 065
     Dates: start: 20240819
  4. AMLODIPINE [Concomitant]
     Active Substance: AMLODIPINE BESYLATE
     Indication: Ill-defined disorder
     Dosage: 1 DOSAGE FORM, OD (TAKE ONE TABLET ONCE A DAY  )
     Route: 065
     Dates: start: 20250211
  5. RAMIPRIL [Concomitant]
     Active Substance: RAMIPRIL
     Indication: Ill-defined disorder
     Dosage: 1 DOSAGE FORM, OD (TAKE ONE CAPSULE ONCE A DAY  )
     Route: 065
     Dates: start: 20250211
  6. MELOXICAM [Concomitant]
     Active Substance: MELOXICAM
     Indication: Pain
     Dosage: UNK UNK, OD (TAKE ONE DAILY FOR PAIN WHEN REQUIRED WITH FOOD...)
     Route: 065
     Dates: start: 20250411
  7. ROSUVASTATIN [Concomitant]
     Active Substance: ROSUVASTATIN
     Indication: Ill-defined disorder
     Dosage: 1 DOSAGE FORM, OD (TAKE ONE TABLET ONCE A DAY  )
     Route: 065
     Dates: start: 20250411, end: 20250711
  8. Eyeaze [Concomitant]
     Indication: Ill-defined disorder
     Route: 065
     Dates: start: 20250609
  9. OMEPRAZOLE [Concomitant]
     Active Substance: OMEPRAZOLE
     Indication: Ill-defined disorder
     Route: 065
     Dates: start: 20250609

REACTIONS (4)
  - Muscle spasms [Recovering/Resolving]
  - Muscular weakness [Unknown]
  - Rash erythematous [Recovering/Resolving]
  - Lethargy [Recovering/Resolving]
